FAERS Safety Report 4702643-4 (Version None)
Quarter: 2005Q2

REPORT INFORMATION
  Report Type: 
  Country: None (occurrence: None)
  Receive Date: 20050629
  Receipt Date: 20040804
  Transmission Date: 20051028
  Serious: No
  Sender: FDA-Public Use
  Company Number: US-GLAXOSMITHKLINE-A0520974A

PATIENT
  Age: 82 Year
  Sex: Male

DRUGS (4)
  1. ZYBAN [Suspect]
     Dosage: 150MG TWICE PER DAY
     Route: 048
  2. TOPROL-XL [Concomitant]
  3. LANOXIN [Concomitant]
     Route: 065
  4. COUMADIN [Concomitant]

REACTIONS (5)
  - COORDINATION ABNORMAL [None]
  - DIZZINESS [None]
  - DYSGEUSIA [None]
  - DYSPHONIA [None]
  - INSOMNIA [None]
